FAERS Safety Report 21631032 (Version 2)
Quarter: 2023Q1

REPORT INFORMATION
  Report Type: Spontaneous
  Country: US (occurrence: US)
  Receive Date: 20221123
  Receipt Date: 20230206
  Transmission Date: 20230417
  Serious: No
  Sender: FDA-Public Use
  Company Number: US-SA-SAC20221118000869

PATIENT
  Age: 52 Year
  Sex: Female

DRUGS (1)
  1. CEREZYME [Suspect]
     Active Substance: IMIGLUCERASE
     Indication: Gaucher^s disease
     Dosage: 4800 IU, QOW
     Route: 042
     Dates: start: 20211221

REACTIONS (2)
  - Bone pain [Unknown]
  - Bone pain [Recovered/Resolved]

NARRATIVE: CASE EVENT DATE: 20221028
